FAERS Safety Report 6066895-3 (Version None)
Quarter: 2009Q1

REPORT INFORMATION
  Report Type: 
  Country: None (occurrence: None)
  Receive Date: 20090205
  Receipt Date: 20080716
  Transmission Date: 20090719
  Serious: No
  Sender: FDA-Public Use
  Company Number: US-ABBOTT-08P-163-0463847-00

PATIENT
  Sex: Female
  Weight: 71.732 kg

DRUGS (1)
  1. VICODIN [Suspect]
     Indication: PROCEDURAL PAIN
     Route: 048
     Dates: start: 20010101, end: 20010101

REACTIONS (2)
  - FORMICATION [None]
  - PALPITATIONS [None]
